FAERS Safety Report 17210588 (Version 1)
Quarter: 2019Q4

REPORT INFORMATION
  Report Type: Spontaneous
  Country: US (occurrence: US)
  Receive Date: 20191227
  Receipt Date: 20191227
  Transmission Date: 20200122
  Serious: No
  Sender: FDA-Public Use
  Company Number: US-ACTELION-A-US2019-199486

PATIENT
  Age: 32 Year
  Sex: Female
  Weight: 65.76 kg

DRUGS (3)
  1. ADCIRCA [Concomitant]
     Active Substance: TADALAFIL
  2. OPSUMIT [Suspect]
     Active Substance: MACITENTAN
     Indication: PULMONARY ARTERIAL HYPERTENSION
     Dosage: 10 MG, QD
     Route: 048
     Dates: start: 20191206
  3. TYVASO [Concomitant]
     Active Substance: TREPROSTINIL

REACTIONS (2)
  - Abdominal pain upper [Unknown]
  - Bladder discomfort [Unknown]

NARRATIVE: CASE EVENT DATE: 20191207
